FAERS Safety Report 18326525 (Version 2)
Quarter: 2020Q3

REPORT INFORMATION
  Report Type: Other
  Country: US (occurrence: US)
  Receive Date: 20200930
  Receipt Date: 20200930
  Transmission Date: 20201103
  Serious: No
  Sender: FDA-Public Use
  Company Number: US-ROCHE-2686775

PATIENT
  Sex: Female

DRUGS (6)
  1. OCREVUS [Suspect]
     Active Substance: OCRELIZUMAB
     Indication: RELAPSING-REMITTING MULTIPLE SCLEROSIS
     Dosage: DATE OF TREATMENT: 16/SEP/2020?PRESCRIBED WITH 300 MG/ 10 ML ON DAY 1 AND DAY 15 THEN EVERY 6 MONTH
     Route: 065
     Dates: start: 20200902
  2. VICODIN [Concomitant]
     Active Substance: ACETAMINOPHEN\HYDROCODONE BITARTRATE
  3. OXYCODONE [Concomitant]
     Active Substance: OXYCODONE
  4. TORADOL [Concomitant]
     Active Substance: KETOROLAC TROMETHAMINE
  5. OCREVUS [Suspect]
     Active Substance: OCRELIZUMAB
     Indication: RELAPSING MULTIPLE SCLEROSIS
  6. MORPHINE [Concomitant]
     Active Substance: MORPHINE

REACTIONS (4)
  - Pruritus [Unknown]
  - Influenza [Unknown]
  - Lethargy [Unknown]
  - Decreased appetite [Unknown]
